FAERS Safety Report 8291501-7 (Version None)
Quarter: 2012Q2

REPORT INFORMATION
  Report Type: 
  Country: None (occurrence: None)
  Receive Date: 20120417
  Receipt Date: 20120410
  Transmission Date: 20120825
  Serious: Yes (Other)
  Sender: FDA-Public Use
  Company Number: US-CELGENEUS-163-21880-12041117

PATIENT
  Sex: Male

DRUGS (6)
  1. CARDIZEM LA [Concomitant]
     Route: 065
  2. LISINOPRIL [Concomitant]
     Route: 065
  3. REVLIMID [Suspect]
     Indication: MULTIPLE MYELOMA
     Dosage: 25 MILLIGRAM
     Route: 048
     Dates: start: 20081101
  4. REVLIMID [Suspect]
     Dosage: 25 MILLIGRAM
     Route: 048
     Dates: start: 20120306
  5. DILTIAZEM HCL [Concomitant]
     Route: 065
  6. PRADAXA [Concomitant]
     Route: 065

REACTIONS (5)
  - CHILLS [None]
  - INSOMNIA [None]
  - HYPOAESTHESIA [None]
  - PAIN IN EXTREMITY [None]
  - PARAESTHESIA [None]
